FAERS Safety Report 5737535-5 (Version None)
Quarter: 2008Q2

REPORT INFORMATION
  Report Type: 
  Country: None (occurrence: None)
  Receive Date: 20080512
  Receipt Date: 20080512
  Transmission Date: 20081010
  Serious: Yes (Death)
  Sender: FDA-Public Use
  Company Number: None

PATIENT
  Age: 81 Year
  Sex: Male
  Weight: 68.9467 kg

DRUGS (1)
  1. DIGITEK TABS MFG. AMIDE (BERTEK) 0.25 MG B1 46 (SEE PART B5 OF THIS RE [Suspect]
     Indication: SURGERY
     Dates: start: 20000601, end: 20080410

REACTIONS (8)
  - ABDOMINAL PAIN LOWER [None]
  - CHOLELITHIASIS [None]
  - GENERAL PHYSICAL HEALTH DETERIORATION [None]
  - INFLAMMATION [None]
  - LOSS OF CONSCIOUSNESS [None]
  - MALAISE [None]
  - PANCREATITIS [None]
  - VOMITING [None]
